FAERS Safety Report 5121631-X (Version None)
Quarter: 2006Q4

REPORT INFORMATION
  Report Type: 
  Country: None (occurrence: None)
  Receive Date: 20061003
  Receipt Date: 20060925
  Transmission Date: 20070319
  Serious: Yes (Other)
  Sender: FDA-Public Use
  Company Number: 2006116317

PATIENT
  Age: 37 Year
  Sex: Female

DRUGS (4)
  1. ZOLOFT [Suspect]
     Indication: DEPRESSION
     Dosage: 100 MG (50 MG, 2 IN 1 D);
     Dates: start: 20060501
  2. XANAX [Concomitant]
  3. NOCTRAN 10 [Concomitant]
  4. THERALENE                  (ALIMEMAZINE TARTRATE) [Concomitant]

REACTIONS (5)
  - ALANINE AMINOTRANSFERASE INCREASED [None]
  - ASPARTATE AMINOTRANSFERASE INCREASED [None]
  - BLOOD THYROID STIMULATING HORMONE INCREASED [None]
  - HYPERTRIGLYCERIDAEMIA [None]
  - RED BLOOD CELL SEDIMENTATION RATE INCREASED [None]
